FAERS Safety Report 7908485-0 (Version None)
Quarter: 2011Q4

REPORT INFORMATION
  Report Type: 
  Country: None (occurrence: None)
  Receive Date: 20111111
  Receipt Date: 20111104
  Transmission Date: 20120403
  Serious: Yes (Hospitalization)
  Sender: FDA-Public Use
  Company Number: US-JNJFOC-20111102169

PATIENT
  Age: 66 Year
  Sex: Male
  Weight: 85 kg

DRUGS (4)
  1. ASACOL [Concomitant]
     Indication: CROHN'S DISEASE
  2. METHOTREXATE [Concomitant]
     Indication: CROHN'S DISEASE
  3. XARELTO [Suspect]
     Indication: HIP ARTHROPLASTY
     Route: 048
     Dates: start: 20111014, end: 20111101
  4. PREDNISONE TAB [Concomitant]
     Indication: CROHN'S DISEASE
     Dates: start: 20110101

REACTIONS (3)
  - PYREXIA [None]
  - MALAISE [None]
  - WHITE BLOOD CELL COUNT DECREASED [None]
